FAERS Safety Report 22041841 (Version 2)
Quarter: 2023Q1

REPORT INFORMATION
  Report Type: Report from Study
  Country: US (occurrence: US)
  Receive Date: 20230227
  Receipt Date: 20230328
  Transmission Date: 20230418
  Serious: Yes (Other)
  Sender: FDA-Public Use
  Company Number: US-BAYER-2023A020044

PATIENT
  Age: 63 Year
  Sex: Male

DRUGS (4)
  1. STIVARGA [Suspect]
     Active Substance: REGORAFENIB
     Indication: Gastrointestinal stromal tumour
     Dosage: UNK
  2. STIVARGA [Suspect]
     Active Substance: REGORAFENIB
     Indication: Gastrointestinal stromal tumour
     Dosage: UNK
     Dates: end: 20230127
  3. STIVARGA [Suspect]
     Active Substance: REGORAFENIB
     Indication: Gastrointestinal stromal tumour
     Dosage: UNK
  4. QINLOCK [Concomitant]
     Active Substance: RIPRETINIB
     Dosage: UNK

REACTIONS (17)
  - Neuropathy peripheral [Recovering/Resolving]
  - Heart rate increased [None]
  - Blood pressure increased [Recovering/Resolving]
  - Drug ineffective [None]
  - Rash [None]
  - Irritability [None]
  - Dry skin [None]
  - Gastrointestinal disorder [None]
  - Diarrhoea [None]
  - Asthenia [None]
  - Fatigue [None]
  - Exercise tolerance decreased [None]
  - Blood creatinine decreased [None]
  - Constipation [None]
  - Abdominal pain [Recovering/Resolving]
  - Arthralgia [None]
  - Burning sensation [None]
